FAERS Safety Report 5174214-X (Version None)
Quarter: 2006Q4

REPORT INFORMATION
  Report Type: 
  Country: None (occurrence: None)
  Receive Date: 20061206
  Receipt Date: 20061122
  Transmission Date: 20070319
  Serious: Yes (Hospitalization)
  Sender: FDA-Public Use
  Company Number: 232938

PATIENT
  Age: 61 Year
  Sex: Male
  Weight: 80.4 kg

DRUGS (12)
  1. BEVACIZUMAB(BEVACIZUMAB) PWDR + SOLVENT,INFUSION SOLN, 100MG [Suspect]
     Indication: COLORECTAL CANCER
     Dosage: 5 MG/KG, Q2W, INTRAVENOUS
     Route: 042
  2. OXALIPLATIN [Suspect]
     Indication: COLORECTAL CANCER
     Dosage: 85 MG/M2, Q2W, INTRAVENOUS
     Route: 042
     Dates: start: 20061020
  3. ATENOLOL [Concomitant]
  4. PLAVIX [Concomitant]
  5. DIOVAN [Concomitant]
  6. COMPAZINE [Concomitant]
  7. IMODIUM [Concomitant]
  8. VITAMIN B (VITAMIN B NOS) [Concomitant]
  9. FOLIC ACID [Concomitant]
  10. PRILOSEC [Concomitant]
  11. FLOMAX [Concomitant]
  12. OXYCONTIN [Concomitant]

REACTIONS (9)
  - BLOOD ALKALINE PHOSPHATASE INCREASED [None]
  - DIARRHOEA [None]
  - HYPOKALAEMIA [None]
  - HYPOMAGNESAEMIA [None]
  - HYPONATRAEMIA [None]
  - HYPOPHOSPHATAEMIA [None]
  - INTESTINAL OBSTRUCTION [None]
  - NAUSEA [None]
  - VOMITING [None]
